FAERS Safety Report 4288647-7 (Version None)
Quarter: 2004Q1

REPORT INFORMATION
  Report Type: 
  Country: None (occurrence: None)
  Receive Date: 20040205
  Receipt Date: 20030904
  Transmission Date: 20041129
  Serious: Yes (Hospitalization)
  Sender: FDA-Public Use
  Company Number: F01200300932

PATIENT
  Age: 58 Year
  Sex: Female

DRUGS (9)
  1. (OXALIPLATIN)- SOLUTION- 85 MG/M2 [Suspect]
     Indication: COLORECTAL CANCER
     Dosage: 85 MG/M2 Q2W, 500MG/M2 BOLUS ON D1, D8 AND D15,Q4W
     Route: 042
     Dates: start: 20030820, end: 20030820
  2. FLUOROURACIL [Suspect]
     Dosage: 500 MG/M2 BOLUR ON D1,  D8, AND D15
     Route: 040
     Dates: start: 20030820, end: 20030820
  3. (LEUCOVORIN) - SOLUTION - 20 MG/M2` [Suspect]
     Dosage: 20 MG/M2 ON D1, D8 AND D15, Q4W; INTRVENOUS BOLUS
     Route: 040
     Dates: start: 20030820, end: 20030820
  4. ACCUPRIL [Concomitant]
  5. SYNTHROID [Concomitant]
  6. GLUCOVANCE [Concomitant]
  7. ACTOS [Concomitant]
  8. COUMADIN [Concomitant]
  9. ZOFRAN [Concomitant]

REACTIONS (8)
  - DEHYDRATION [None]
  - DIZZINESS [None]
  - DYSPNOEA [None]
  - ENTEROCOLITIS [None]
  - FAECES DISCOLOURED [None]
  - ILEUS [None]
  - LARGE INTESTINAL OBSTRUCTION [None]
  - PANIC ATTACK [None]
